FAERS Safety Report 7384702-3 (Version None)
Quarter: 2011Q1

REPORT INFORMATION
  Report Type: 
  Country: None (occurrence: None)
  Receive Date: 20110330
  Receipt Date: 20110318
  Transmission Date: 20110831
  Serious: Yes (Hospitalization)
  Sender: FDA-Public Use
  Company Number: PHHY2011JP19786

PATIENT
  Age: 35 Year
  Sex: Male

DRUGS (14)
  1. CYCLOSPORINE [Suspect]
     Indication: BONE MARROW TRANSPLANT
     Dosage: 40 MG, UNK
  2. CYCLOSPORINE [Suspect]
     Indication: PROPHYLAXIS AGAINST GRAFT VERSUS HOST DISEASE
  3. CYCLOPHOSPHAMIDE [Concomitant]
     Indication: BONE MARROW TRANSPLANT
  4. BUSULFAN [Concomitant]
     Indication: BONE MARROW TRANSPLANT
  5. METHOTREXATE [Concomitant]
     Indication: PROPHYLAXIS AGAINST GRAFT VERSUS HOST DISEASE
  6. SULFAMETHOXAZOLE AND TRIMETHOPRIM [Concomitant]
  7. MITOXANTRONE [Concomitant]
  8. IDARUBICIN HCL [Concomitant]
  9. STEROIDS [Concomitant]
  10. PREDNISOLONE [Concomitant]
     Dosage: 1 MG/KG/DAY
  11. CYTARABINE [Concomitant]
  12. METHOTREXATE [Concomitant]
     Indication: BONE MARROW TRANSPLANT
  13. ITRACONAZOLE [Concomitant]
  14. CLARITHROMYCIN [Concomitant]
     Route: 048

REACTIONS (9)
  - SUBCUTANEOUS EMPHYSEMA [None]
  - CHEST PAIN [None]
  - ORGANISING PNEUMONIA [None]
  - COUGH [None]
  - DYSPNOEA EXERTIONAL [None]
  - PYREXIA [None]
  - PNEUMOMEDIASTINUM [None]
  - BRONCHOALVEOLAR LAVAGE ABNORMAL [None]
  - BRONCHIECTASIS [None]
